FAERS Safety Report 15313319 (Version 1)
Quarter: 2018Q3

REPORT INFORMATION
  Report Type: Spontaneous
  Country: US (occurrence: US)
  Receive Date: 20180823
  Receipt Date: 20180823
  Transmission Date: 20181010
  Serious: Yes (Hospitalization)
  Sender: FDA-Public Use
  Company Number: US-PRINSTON PHARMACEUTICAL INC.-2018PRN00756

PATIENT
  Age: 69 Year
  Sex: Female
  Weight: 113.38 kg

DRUGS (6)
  1. ENALAPRIL [Concomitant]
     Active Substance: ENALAPRIL
     Dosage: 10 MG, UNK
  2. ^RATAGLINIDE^ [Concomitant]
     Dosage: 2 MG, UNK
  3. ASPIRIN. [Concomitant]
     Active Substance: ASPIRIN
     Dosage: 81 MG, UNK
  4. VALSARTAN. [Suspect]
     Active Substance: VALSARTAN
     Indication: BLOOD PRESSURE ABNORMAL
     Dosage: 80 MG, 1X/DAY
     Route: 048
     Dates: start: 201802, end: 20180727
  5. AMLODIPINE [Concomitant]
     Active Substance: AMLODIPINE BESYLATE
     Dosage: 20 UNK, UNK
  6. HYDROCHLOROTHIAZIDE. [Concomitant]
     Active Substance: HYDROCHLOROTHIAZIDE
     Dosage: 12.5 MG, UNK

REACTIONS (10)
  - Abdominal pain [Recovering/Resolving]
  - Nausea [Recovering/Resolving]
  - Flatulence [Recovering/Resolving]
  - Endoscopy [Recovered/Resolved]
  - Decreased appetite [Recovering/Resolving]
  - Constipation [Recovering/Resolving]
  - Vomiting [Recovering/Resolving]
  - Colonoscopy [Recovered/Resolved]
  - Dysgeusia [Recovering/Resolving]
  - Weight decreased [Recovering/Resolving]

NARRATIVE: CASE EVENT DATE: 2018
